FAERS Safety Report 7826626 (Version 14)
Quarter: 2013Q4

REPORT INFORMATION
  Report Type: Spontaneous
  Country: US (occurrence: US)
  Receive Date: 20110224
  Receipt Date: 20131007
  Transmission Date: 20140711
  Serious: Yes (Other)
  Sender: FDA-Public Use
  Company Number: PHEH2011US00443

PATIENT
  Sex: Female
  Weight: 58.7 kg

DRUGS (14)
  1. ZOMETA [Suspect]
     Indication: BREAST CANCER
     Route: 042
     Dates: start: 200603, end: 200801
  2. ENOXAPARIN [Concomitant]
  3. FAMOTIDINE [Concomitant]
  4. OXYCONTIN [Concomitant]
  5. EFEXOR XR [Concomitant]
  6. MORPHINE [Concomitant]
  7. NALOXONE [Concomitant]
  8. ZOFRAN [Concomitant]
  9. MYLICON [Concomitant]
  10. AMBIEN [Concomitant]
  11. COLACE [Concomitant]
  12. COMPAZINE [Concomitant]
  13. BACTRIM [Concomitant]
  14. RIFAMPICIN [Concomitant]

REACTIONS (52)
  - Ovarian cyst [Unknown]
  - Hepatic cyst [Unknown]
  - Haemorrhage [Unknown]
  - Osteonecrosis of jaw [Unknown]
  - Injury [Unknown]
  - Disability [Unknown]
  - Pain [Unknown]
  - Gingival abscess [Unknown]
  - Exposed bone in jaw [Unknown]
  - Pain in jaw [Unknown]
  - Anxiety [Unknown]
  - Decreased interest [Unknown]
  - Sinus bradycardia [Unknown]
  - Corneal abrasion [Unknown]
  - Rheumatoid arthritis [Unknown]
  - Osteopenia [Unknown]
  - Exostosis [Unknown]
  - Cyst [Unknown]
  - Conjunctivitis allergic [Unknown]
  - Vaginal haemorrhage [Unknown]
  - Lymphadenopathy [Unknown]
  - Bunion [Unknown]
  - Depression [Unknown]
  - Leiomyoma [Unknown]
  - Fatigue [Unknown]
  - Weight increased [Unknown]
  - Cardiac murmur [Unknown]
  - Seasonal allergy [Unknown]
  - Blepharitis [Unknown]
  - Insomnia [Unknown]
  - Abdominal pain [Unknown]
  - Migraine [Unknown]
  - Hot flush [Unknown]
  - Vulvovaginal dryness [Unknown]
  - Superficial injury of eye [Unknown]
  - Nail injury [Unknown]
  - Neuralgia [Unknown]
  - Porokeratosis [Unknown]
  - Hand deformity [Unknown]
  - Osteoarthritis [Unknown]
  - Arthralgia [Unknown]
  - Spinal osteoarthritis [Unknown]
  - Intervertebral disc space narrowing [Unknown]
  - Intervertebral disc protrusion [Unknown]
  - Vertebral foraminal stenosis [Unknown]
  - Spondylolisthesis [Unknown]
  - Intervertebral disc degeneration [Unknown]
  - Musculoskeletal pain [Unknown]
  - Myalgia [Unknown]
  - Pain in extremity [Unknown]
  - Bone swelling [Unknown]
  - Radiculitis [Unknown]
